FAERS Safety Report 8964770 (Version 1)
Quarter: 2012Q4

REPORT INFORMATION
  Report Type: 
  Country: CO (occurrence: CO)
  Receive Date: 20121213
  Receipt Date: 20121213
  Transmission Date: 20130627
  Serious: Yes (Other)
  Sender: FDA-Public Use
  Company Number: CO-PFIZER INC-2012083077

PATIENT
  Age: 77 Year
  Sex: Female

DRUGS (6)
  1. DETRUSITOL [Suspect]
     Indication: URINARY INCONTINENCE
     Dosage: 4 mg, 2x/day
     Route: 048
     Dates: start: 2009
  2. DETRUSITOL [Suspect]
     Dosage: 4 mg, 1x/day
     Route: 048
     Dates: start: 201010
  3. METOPROLOL [Concomitant]
     Indication: HEART DISORDER
     Dosage: 150 mg, UNK
     Route: 065
     Dates: start: 2004
  4. LOSARTAN [Concomitant]
     Indication: HEART DISORDER
     Dosage: 150 mg, UNK
     Route: 065
     Dates: start: 2004
  5. ASPIRINETAS [Concomitant]
     Dosage: 100 mg, UNK
     Route: 065
  6. EUTIROX [Concomitant]
     Dosage: 100 mg, UNK

REACTIONS (3)
  - Myocardial ischaemia [Not Recovered/Not Resolved]
  - Amnesia [Not Recovered/Not Resolved]
  - Drug ineffective [Not Recovered/Not Resolved]
